FAERS Safety Report 6336367-7 (Version None)
Quarter: 2009Q3

REPORT INFORMATION
  Report Type: 
  Country: None (occurrence: None)
  Receive Date: 20090901
  Receipt Date: 20090820
  Transmission Date: 20100115
  Serious: Yes (Death, Life-Threatening)
  Sender: FDA-Public Use
  Company Number: SI-ELI_LILLY_AND_COMPANY-SI200908004332

PATIENT
  Age: 53 Year
  Sex: Female

DRUGS (4)
  1. CYMBALTA [Suspect]
     Indication: DEPRESSION
     Dosage: UNK, UNKNOWN
     Route: 065
  2. CYMBALTA [Suspect]
     Dosage: ALMOST 2 PACKAGES AT ONCE
     Route: 065
  3. CIPRALEX [Concomitant]
     Indication: DEPRESSION
     Dosage: 10 MG, 2/D
     Route: 065
  4. CIPRALEX [Concomitant]
     Dosage: 10 MG, 2/D
     Route: 065

REACTIONS (5)
  - BRAIN OEDEMA [None]
  - COMA [None]
  - DEATH [None]
  - MALAISE [None]
  - OVERDOSE [None]
